FAERS Safety Report 4963851-0 (Version None)
Quarter: 2006Q1

REPORT INFORMATION
  Report Type: 
  Country: None (occurrence: None)
  Receive Date: 20060330
  Receipt Date: 20060317
  Transmission Date: 20060701
  Serious: Yes (Other)
  Sender: FDA-Public Use
  Company Number: 2006BI004223

PATIENT
  Age: 35 Year
  Sex: Female
  Weight: 68.0396 kg

DRUGS (3)
  1. AVONEX [Suspect]
     Indication: MULTIPLE SCLEROSIS
     Dosage: 30 UG, QW; IM
     Route: 030
     Dates: start: 20060210
  2. ZOCOR [Concomitant]
  3. MULTIVITAMIN [Concomitant]

REACTIONS (4)
  - EYE PAIN [None]
  - FATIGUE [None]
  - PAIN [None]
  - PYREXIA [None]
